FAERS Safety Report 8858494 (Version 3)
Quarter: 2012Q4

REPORT INFORMATION
  Report Type: 
  Country: CA (occurrence: CA)
  Receive Date: 20121024
  Receipt Date: 20121120
  Transmission Date: 20130627
  Serious: Yes (Life-Threatening, Hospitalization, Other)
  Sender: FDA-Public Use
  Company Number: CA-ROCHE-1148163

PATIENT
  Sex: Female

DRUGS (10)
  1. XOLAIR [Suspect]
     Indication: ASTHMA
     Route: 058
     Dates: start: 20110728
  2. XOLAIR [Suspect]
     Route: 058
     Dates: start: 20110805
  3. XOLAIR [Suspect]
     Route: 058
     Dates: start: 20120919
  4. SPIRIVA [Concomitant]
  5. ADVAIR [Concomitant]
  6. VENTOLIN [Concomitant]
  7. SINGULAIR [Concomitant]
  8. FLUTICASONE [Concomitant]
  9. PREDNISONE [Concomitant]
  10. SALMETEROL XINAFOATE [Concomitant]

REACTIONS (5)
  - Aneurysm [Recovering/Resolving]
  - Cerebrovascular accident [Unknown]
  - Clostridium difficile infection [Unknown]
  - Malaise [Unknown]
  - General physical health deterioration [Unknown]
